FAERS Safety Report 15243876 (Version 2)
Quarter: 2018Q3

REPORT INFORMATION
  Report Type: Spontaneous
  Country: US (occurrence: US)
  Receive Date: 20180806
  Receipt Date: 20180903
  Transmission Date: 20181010
  Serious: No
  Sender: FDA-Public Use
  Company Number: US-SA-2018SA211088

PATIENT
  Age: 47 Year
  Sex: Male

DRUGS (1)
  1. DUPIXENT [Suspect]
     Active Substance: DUPILUMAB
     Indication: DERMATITIS ATOPIC
     Dosage: 300 MG, QOW
     Route: 058
     Dates: start: 201806

REACTIONS (4)
  - Skin texture abnormal [Unknown]
  - Rash papular [Unknown]
  - Visual impairment [Not Recovered/Not Resolved]
  - Arthropod bite [Unknown]
